FAERS Safety Report 21747601 (Version 1)
Quarter: 2022Q4

REPORT INFORMATION
  Report Type: Spontaneous
  Country: US (occurrence: US)
  Receive Date: 20221219
  Receipt Date: 20221219
  Transmission Date: 20230112
  Serious: No
  Sender: FDA-Public Use
  Company Number: US-BEH-2022153386

PATIENT
  Age: 76 Year
  Sex: Female

DRUGS (2)
  1. PRIVIGEN [Suspect]
     Active Substance: HUMAN IMMUNOGLOBULIN G
     Dosage: UNK
     Route: 042
  2. PRIVIGEN [Suspect]
     Active Substance: HUMAN IMMUNOGLOBULIN G
     Dosage: UNK
     Route: 042

REACTIONS (8)
  - Hypertension [Unknown]
  - Incorrect drug administration rate [Unknown]
  - Dizziness [Unknown]
  - Incorrect drug administration rate [Unknown]
  - Tremor [Unknown]
  - Incorrect drug administration rate [Unknown]
  - Feeling abnormal [Unknown]
  - Incorrect drug administration rate [Unknown]
